FAERS Safety Report 19981013 (Version 2)
Quarter: 2022Q2

REPORT INFORMATION
  Report Type: Spontaneous
  Country: US (occurrence: US)
  Receive Date: 20211021
  Receipt Date: 20220405
  Transmission Date: 20220721
  Serious: No
  Sender: FDA-Public Use
  Company Number: US-PFIZER INC-2021820732

PATIENT
  Age: 75 Year
  Sex: Female
  Weight: 50.35 kg

DRUGS (6)
  1. IBRANCE [Suspect]
     Active Substance: PALBOCICLIB
     Indication: Breast cancer female
     Dosage: 125 MG
     Dates: start: 20210419
  2. IBRANCE [Suspect]
     Active Substance: PALBOCICLIB
     Dosage: 100 MG
  3. NIFEDIPINE [Concomitant]
     Active Substance: NIFEDIPINE
     Indication: Hypertension
     Dosage: 60 MG, 1X/DAY (NIFEDIPINE IN THE MORNING)
  4. ATENOLOL [Concomitant]
     Active Substance: ATENOLOL
     Indication: Hypertension
     Dosage: 50 MG, 1X/DAY (TAKE IT EVERY MORNING)
  5. ASPIRIN [Concomitant]
     Active Substance: ASPIRIN
     Dosage: 81 MG  (IN THE MORNING)
  6. SIMVASTATIN [Concomitant]
     Active Substance: SIMVASTATIN
     Indication: Hypertension
     Dosage: 10 MG, 1X/DAY (TAKE IT ON NIGHT BEFORE I GO TO THE BED)

REACTIONS (1)
  - Blister [Unknown]
